FAERS Safety Report 4458471-0 (Version None)
Quarter: 2004Q3

REPORT INFORMATION
  Report Type: 
  Country: None (occurrence: None)
  Receive Date: 20040922
  Receipt Date: 20040618
  Transmission Date: 20050211
  Serious: Yes (Hospitalization)
  Sender: FDA-Public Use
  Company Number: US-SHR-03-001320

PATIENT
  Age: 43 Year
  Sex: Male
  Weight: 72.6 kg

DRUGS (8)
  1. BETASERON [Suspect]
     Indication: MULTIPLE SCLEROSIS
     Dosage: SEE IMAGE
     Route: 058
     Dates: start: 20020401, end: 20030115
  2. BETASERON [Suspect]
     Indication: MULTIPLE SCLEROSIS
     Dosage: SEE IMAGE
     Route: 058
     Dates: start: 20030201, end: 20031201
  3. BETASERON [Suspect]
     Indication: MULTIPLE SCLEROSIS
     Dosage: SEE IMAGE
     Route: 058
     Dates: start: 20040101
  4. ZANAFLEX [Concomitant]
  5. PROZAC [Concomitant]
  6. NEURONTIN [Concomitant]
  7. TYLENOL [Concomitant]
  8. AMBIEN [Concomitant]

REACTIONS (4)
  - DIFFICULTY IN WALKING [None]
  - INJECTION SITE CELLULITIS [None]
  - OEDEMA PERIPHERAL [None]
  - PYREXIA [None]
